FAERS Safety Report 5472101-0 (Version None)
Quarter: 2007Q3

REPORT INFORMATION
  Report Type: 
  Country: None (occurrence: None)
  Receive Date: 20070925
  Receipt Date: 20070911
  Transmission Date: 20080115
  Serious: Yes (Disabling, Other)
  Sender: FDA-Public Use
  Company Number: 17457

PATIENT
  Age: 26 Year
  Sex: Male

DRUGS (4)
  1. HALOPERIDOL [Suspect]
     Indication: BIPOLAR DISORDER
  2. HALOPERIDOL [Suspect]
     Indication: BIPOLAR DISORDER
  3. QUETIAPINE FUMARATE [Concomitant]
  4. MOOD STABILIZER [Concomitant]

REACTIONS (5)
  - BIPOLAR DISORDER [None]
  - DYSTONIA [None]
  - HEADACHE [None]
  - JOINT DISLOCATION [None]
  - WEIGHT DECREASED [None]
